FAERS Safety Report 8010474-5 (Version None)
Quarter: 2011Q4

REPORT INFORMATION
  Report Type: 
  Country: None (occurrence: None)
  Receive Date: 20111223
  Receipt Date: 20111223
  Transmission Date: 20120403
  Serious: Yes (Life-Threatening, Hospitalization, Disabling, Other)
  Sender: FDA-Public Use
  Company Number: None

PATIENT
  Age: 36 Year
  Sex: Male
  Weight: 133.8111 kg

DRUGS (5)
  1. SEROQUEL [Concomitant]
  2. PAXIL [Concomitant]
  3. ABILIFY [Concomitant]
  4. GEODON [Suspect]
     Indication: SEDATION
     Dosage: 80 MG A DAY 047
     Route: 048
     Dates: start: 20021206, end: 20030102
  5. LEXAPRO [Concomitant]

REACTIONS (5)
  - VISUAL ACUITY REDUCED [None]
  - BLOOD GLUCOSE DECREASED [None]
  - HAEMORRHAGE [None]
  - ILL-DEFINED DISORDER [None]
  - APHASIA [None]
